FAERS Safety Report 18772516 (Version 1)
Quarter: 2021Q1

REPORT INFORMATION
  Report Type: Spontaneous
  Country: AT (occurrence: AT)
  Receive Date: 20210122
  Receipt Date: 20210122
  Transmission Date: 20210419
  Serious: Yes (Other)
  Sender: FDA-Public Use
  Company Number: AT-TEVA-2021-AT-1871325

PATIENT
  Age: 32 Year
  Sex: Female

DRUGS (1)
  1. NAPROBENE 500 MG ? FILMTABLETTEN [Suspect]
     Active Substance: NAPROXEN
     Dosage: ACCORDING TO SPECIALIST INFORMATION
     Route: 065
     Dates: start: 20171201, end: 20171201

REACTIONS (3)
  - Type I hypersensitivity [Unknown]
  - Paraesthesia [Unknown]
  - Lip swelling [Unknown]

NARRATIVE: CASE EVENT DATE: 20171201
